FAERS Safety Report 7745235-5 (Version None)
Quarter: 2011Q3

REPORT INFORMATION
  Report Type: 
  Country: None (occurrence: None)
  Receive Date: 20110819
  Receipt Date: 20110711
  Transmission Date: 20111222
  Serious: No
  Sender: FDA-Public Use
  Company Number: 036976

PATIENT
  Sex: Female
  Weight: 56.7 kg

DRUGS (2)
  1. LACOSAMIDE [Suspect]
     Indication: CONVULSION
     Dosage: (150 MG BID ORAL)
     Route: 048
     Dates: start: 20110101
  2. KEPPRA [Suspect]
     Indication: CONVULSION
     Dosage: (1500 MG BID ORAL)
     Route: 048
     Dates: start: 20090101

REACTIONS (1)
  - ALOPECIA [None]
